FAERS Safety Report 6286934-4 (Version None)
Quarter: 2009Q3

REPORT INFORMATION
  Report Type: 
  Country: None (occurrence: None)
  Receive Date: 20090728
  Receipt Date: 20090723
  Transmission Date: 20100115
  Serious: Yes (Hospitalization)
  Sender: FDA-Public Use
  Company Number: AU-BRISTOL-MYERS SQUIBB COMPANY-14712889

PATIENT
  Age: 9 Year
  Sex: Female

DRUGS (3)
  1. ETOPOSIDE [Suspect]
  2. DAUNORUBICIN HCL [Suspect]
  3. CYTARABINE [Suspect]

REACTIONS (4)
  - CARDIAC FAILURE CONGESTIVE [None]
  - CARDIOTOXICITY [None]
  - PERICARDIAL EFFUSION [None]
  - SEPSIS [None]
